FAERS Safety Report 12708235 (Version 2)
Quarter: 2016Q3

REPORT INFORMATION
  Report Type: Spontaneous
  Country: US (occurrence: US)
  Receive Date: 20160901
  Receipt Date: 20160914
  Transmission Date: 20161109
  Serious: No
  Sender: FDA-Public Use
  Company Number: US-ASTRAZENECA-2016SE89783

PATIENT
  Sex: Female

DRUGS (1)
  1. TOPROL XL [Suspect]
     Active Substance: METOPROLOL SUCCINATE
     Dosage: UNKNOWN
     Route: 048

REACTIONS (4)
  - Palpitations [Unknown]
  - Heart rate increased [Unknown]
  - Cardiac disorder [Unknown]
  - Adverse event [Unknown]
